FAERS Safety Report 7478154-2 (Version None)
Quarter: 2011Q2

REPORT INFORMATION
  Report Type: 
  Country: None (occurrence: None)
  Receive Date: 20110511
  Receipt Date: 20110511
  Transmission Date: 20111010
  Serious: Yes (Hospitalization, Other)
  Sender: FDA-Public Use
  Company Number: None

PATIENT
  Age: 77 Year
  Sex: Male

DRUGS (19)
  1. WARFARIN SODIUM [Suspect]
     Indication: ATRIAL FIBRILLATION
     Dosage: 5MG DAILY PO
     Route: 048
     Dates: start: 20101219, end: 20110324
  2. GLIPIZIDE [Concomitant]
  3. LANTUS [Concomitant]
  4. ASPIRIN [Concomitant]
  5. CARVEDILOL [Concomitant]
  6. CLOPIDOGREL [Concomitant]
  7. ESOMEPRAZOLE MAGNESIUM [Concomitant]
  8. FUROSEMIDE [Concomitant]
  9. FINASTERIDE [Concomitant]
  10. LISINOPRIL [Concomitant]
  11. PRAVASTATIN [Concomitant]
  12. COLACE [Concomitant]
  13. INSULIN ASPART [Concomitant]
  14. METOPROLOL SUCCINATE [Concomitant]
  15. CALCIUM CITRATE [Concomitant]
  16. MEMANTINE [Concomitant]
  17. ERGOCALCIFEROL [Concomitant]
  18. DONEPEZIL [Concomitant]
  19. SOTALOL HCL [Concomitant]

REACTIONS (8)
  - INTERNATIONAL NORMALISED RATIO INCREASED [None]
  - HAEMORRHAGE [None]
  - ABDOMINAL PAIN LOWER [None]
  - COLONIC HAEMATOMA [None]
  - HAEMOGLOBIN DECREASED [None]
  - LOWER GASTROINTESTINAL HAEMORRHAGE [None]
  - MOUTH HAEMORRHAGE [None]
  - HAEMATURIA [None]
